FAERS Safety Report 5192427-8 (Version None)
Quarter: 2006Q4

REPORT INFORMATION
  Report Type: 
  Country: None (occurrence: None)
  Receive Date: 20061220
  Receipt Date: 20061208
  Transmission Date: 20070319
  Serious: Yes (Other)
  Sender: FDA-Public Use
  Company Number: 2006125581

PATIENT
  Sex: Female
  Weight: 45.3597 kg

DRUGS (3)
  1. LYRICA [Suspect]
     Indication: NEURALGIA
     Dosage: 100 MG (50 MG, 2 IN 1 D)
     Dates: start: 20060922, end: 20061012
  2. LYRICA [Suspect]
     Indication: PSORIATIC ARTHROPATHY
     Dosage: 100 MG (50 MG, 2 IN 1 D)
     Dates: start: 20060922, end: 20061012
  3. LEVOTHYROXINE SODIUM [Concomitant]

REACTIONS (10)
  - AGITATION [None]
  - ANGER [None]
  - DRUG EFFECT DECREASED [None]
  - FAECAL INCONTINENCE [None]
  - IRRITABILITY [None]
  - MENTAL IMPAIRMENT [None]
  - MUSCLE DISORDER [None]
  - PAIN [None]
  - URINARY INCONTINENCE [None]
  - VERBIGERATION [None]
